FAERS Safety Report 18008051 (Version 1)
Quarter: 2020Q3

REPORT INFORMATION
  Report Type: Spontaneous
  Country: US (occurrence: US)
  Receive Date: 20200707
  Receipt Date: 20200707
  Transmission Date: 20201103
  Serious: Yes (Other)
  Sender: FDA-Public Use
  Company Number: None

PATIENT
  Sex: Female

DRUGS (1)
  1. ICATIBANT ACETATE SYR (3?PAK) 30MG/3ML TEVA PHARMACEUTICALS USA [Suspect]
     Active Substance: ICATIBANT ACETATE
     Indication: COMPLEMENT DEFICIENCY DISEASE
     Route: 058
     Dates: start: 202002

REACTIONS (1)
  - Device issue [None]
